FAERS Safety Report 12144153 (Version 2)
Quarter: 2016Q1

REPORT INFORMATION
  Report Type: Report from Study
  Country: US (occurrence: US)
  Receive Date: 20160304
  Receipt Date: 20160330
  Transmission Date: 20160526
  Serious: No
  Sender: FDA-Public Use
  Company Number: US-AMGEN-USASL2016023267

PATIENT
  Age: 45 Year
  Sex: Male

DRUGS (1)
  1. ENBREL [Suspect]
     Active Substance: ETANERCEPT
     Indication: RHEUMATOID ARTHRITIS
     Dosage: 50 MG, QWK
     Route: 065
     Dates: start: 20160219

REACTIONS (5)
  - Blood pressure increased [Unknown]
  - Visual impairment [Unknown]
  - Injection site pain [Unknown]
  - Sinusitis [Unknown]
  - Blepharospasm [Unknown]

NARRATIVE: CASE EVENT DATE: 2016
